FAERS Safety Report 4763662-5 (Version None)
Quarter: 2005Q3

REPORT INFORMATION
  Report Type: 
  Country: None (occurrence: None)
  Receive Date: 20050908
  Receipt Date: 20050830
  Transmission Date: 20060218
  Serious: Yes (Other)
  Sender: FDA-Public Use
  Company Number: PHBS2005JP12806

PATIENT
  Age: 0 Day

DRUGS (5)
  1. SOLANAX [Suspect]
     Route: 064
  2. ROHYPNOL [Concomitant]
     Route: 064
  3. NITRAZEPAM [Concomitant]
     Route: 064
  4. VEGETAMIN B [Concomitant]
     Route: 064
  5. TOFRANIL [Suspect]
     Route: 064

REACTIONS (5)
  - CONVULSION NEONATAL [None]
  - DRUG EXPOSURE DURING PREGNANCY [None]
  - DRUG WITHDRAWAL SYNDROME NEONATAL [None]
  - HYPERTONIA NEONATAL [None]
  - WHEEZING [None]
